FAERS Safety Report 15675323 (Version 4)
Quarter: 2022Q4

REPORT INFORMATION
  Report Type: Spontaneous
  Country: US (occurrence: US)
  Receive Date: 20181130
  Receipt Date: 20221230
  Transmission Date: 20230113
  Serious: No
  Sender: FDA-Public Use
  Company Number: US-TEVA-2018-US-982987

PATIENT
  Age: 31 Year
  Sex: Female

DRUGS (4)
  1. PROVIGIL [Suspect]
     Active Substance: MODAFINIL
     Indication: Bipolar disorder
     Dosage: 200 MILLIGRAM DAILY; 200MG ONCE DAILY
     Route: 064
  2. ABILIFY [Suspect]
     Active Substance: ARIPIPRAZOLE
     Indication: Bipolar disorder
     Dosage: 30 MILLIGRAM DAILY; 30MG DAILY
     Route: 064
  3. ZOLOFT [Suspect]
     Active Substance: SERTRALINE HYDROCHLORIDE
     Indication: Bipolar disorder
     Dosage: 100 MILLIGRAM DAILY; 100MG ONCE DAILY
     Route: 064
  4. BUSPAR [Suspect]
     Active Substance: BUSPIRONE HYDROCHLORIDE
     Indication: Bipolar disorder
     Dosage: 20 MILLIGRAM DAILY; 10MG TWICE DAILY
     Route: 064

REACTIONS (2)
  - Maternal exposure during pregnancy [Unknown]
  - Live birth [Unknown]
